FAERS Safety Report 9604758 (Version 1)
Quarter: 2013Q4

REPORT INFORMATION
  Report Type: Spontaneous
  Country: US (occurrence: US)
  Receive Date: 20131008
  Receipt Date: 20131008
  Transmission Date: 20140711
  Serious: No
  Sender: FDA-Public Use
  Company Number: US-PFIZER INC-2013285389

PATIENT
  Sex: 0

DRUGS (2)
  1. LEVOXYL [Suspect]
     Dosage: 0.137 (NO UNITS PROVIDED)
  2. LEVOXYL [Suspect]
     Dosage: 0.150 (NO UNITS PROVIDED)

REACTIONS (1)
  - Blood thyroid stimulating hormone increased [Unknown]
